FAERS Safety Report 23156685 (Version 2)
Quarter: 2023Q4

REPORT INFORMATION
  Report Type: Report from Study
  Country: AR (occurrence: AR)
  Receive Date: 20231107
  Receipt Date: 20231206
  Transmission Date: 20240110
  Serious: Yes (Hospitalization)
  Sender: FDA-Public Use
  Company Number: AR-BIOGEN-2023BI01234485

PATIENT
  Age: 17 Year
  Sex: Male

DRUGS (1)
  1. SPINRAZA [Suspect]
     Active Substance: NUSINERSEN
     Indication: Spinal muscular atrophy
     Dosage: LAST APPLICATION ON 13-JUL-2023
     Route: 050
     Dates: start: 20191107

REACTIONS (2)
  - Seizure [Not Recovered/Not Resolved]
  - Brain abscess [Unknown]

NARRATIVE: CASE EVENT DATE: 20231101
